FAERS Safety Report 17836473 (Version 2)
Quarter: 2020Q2

REPORT INFORMATION
  Report Type: Spontaneous
  Country: ES (occurrence: ES)
  Receive Date: 20200528
  Receipt Date: 20200602
  Transmission Date: 20200714
  Serious: Yes (Death, Hospitalization)
  Sender: FDA-Public Use
  Company Number: ES-CELGENEUS-ESP-20200506397

PATIENT
  Age: 77 Year
  Sex: Male

DRUGS (8)
  1. ENASIDENIB [Suspect]
     Active Substance: ENASIDENIB
     Indication: ACUTE MYELOID LEUKAEMIA
     Dosage: 100 MILLIGRAM
     Route: 048
     Dates: start: 20200420, end: 20200519
  2. ENASIDENIB [Suspect]
     Active Substance: ENASIDENIB
     Dosage: 100 MILLIGRAM
     Route: 048
  3. SPIOLTO RESPIMAT [Concomitant]
     Active Substance: OLODATEROL HYDROCHLORIDE\TIOTROPIUM BROMIDE MONOHYDRATE
     Indication: PRODUCT USED FOR UNKNOWN INDICATION
     Dosage: 5 MICROGRAM
     Route: 055
  4. CARVEDILOL. [Concomitant]
     Active Substance: CARVEDILOL
     Indication: PRODUCT USED FOR UNKNOWN INDICATION
     Dosage: .5 DOSAGE FORMS
     Route: 065
  5. LEVOFLOXACIN. [Concomitant]
     Active Substance: LEVOFLOXACIN
     Indication: PRODUCT USED FOR UNKNOWN INDICATION
     Dosage: 500 MILLIGRAM
     Route: 065
  6. ATORVASTATIN [Concomitant]
     Active Substance: ATORVASTATIN
     Indication: PRODUCT USED FOR UNKNOWN INDICATION
     Dosage: 20 MILLIGRAM
     Route: 065
  7. ESOMEPRAZOL [Concomitant]
     Active Substance: ESOMEPRAZOLE
     Indication: PRODUCT USED FOR UNKNOWN INDICATION
     Dosage: 20 MILLIGRAM
     Route: 065
  8. ENALAPRIL [Concomitant]
     Active Substance: ENALAPRIL
     Indication: PRODUCT USED FOR UNKNOWN INDICATION
     Dosage: 5 MILLIGRAM
     Route: 065

REACTIONS (3)
  - Acute kidney injury [Recovered/Resolved]
  - Septic shock [Not Recovered/Not Resolved]
  - Acute respiratory failure [Fatal]

NARRATIVE: CASE EVENT DATE: 202005
